FAERS Safety Report 17439580 (Version 1)
Quarter: 2020Q1

REPORT INFORMATION
  Report Type: Spontaneous
  Country: US (occurrence: US)
  Receive Date: 20200219
  Receipt Date: 20200219
  Transmission Date: 20200409
  Serious: Yes (Death, Hospitalization)
  Sender: FDA-Public Use
  Company Number: None

PATIENT
  Age: 74 Year
  Sex: Male

DRUGS (16)
  1. OXYCODONE [Concomitant]
     Active Substance: OXYCODONE
  2. FUROSEMIDE. [Concomitant]
     Active Substance: FUROSEMIDE
  3. MYCOPHENOLATE [Suspect]
     Active Substance: MYCOPHENOLIC ACID
     Indication: LIVER TRANSPLANT
     Route: 048
     Dates: start: 20190930, end: 20200214
  4. ROSUVASTATIN. [Concomitant]
     Active Substance: ROSUVASTATIN
  5. LANTUS [Concomitant]
     Active Substance: INSULIN GLARGINE
  6. ELIQUIS [Concomitant]
     Active Substance: APIXABAN
  7. TACROLIMUS. [Suspect]
     Active Substance: TACROLIMUS
     Indication: LIVER TRANSPLANT
     Route: 048
     Dates: start: 20191122, end: 20200214
  8. HALOPERIDOL. [Concomitant]
     Active Substance: HALOPERIDOL
  9. MIRTAZAPINE. [Concomitant]
     Active Substance: MIRTAZAPINE
  10. AZITHROMYCIN ANHYDROUS. [Concomitant]
     Active Substance: AZITHROMYCIN ANHYDROUS
  11. FENTANYL. [Concomitant]
     Active Substance: FENTANYL
  12. DOK PLUS [Concomitant]
     Active Substance: DOCUSATE SODIUM\SENNOSIDES
  13. LORAZEPAM. [Concomitant]
     Active Substance: LORAZEPAM
  14. TRAZODONE [Concomitant]
     Active Substance: TRAZODONE HYDROCHLORIDE
  15. NOVOLOG [Concomitant]
     Active Substance: INSULIN ASPART
  16. METOPROL TAR [Concomitant]

REACTIONS (1)
  - Death [None]

NARRATIVE: CASE EVENT DATE: 20200214
